FAERS Safety Report 22254596 (Version 1)
Quarter: 2023Q2

REPORT INFORMATION
  Report Type: Report from Study
  Country: US (occurrence: None)
  Receive Date: 20230426
  Receipt Date: 20230426
  Transmission Date: 20230722
  Serious: Yes (Hospitalization)
  Sender: FDA-Public Use
  Company Number: US-Eisai Medical Research-EC-2023-134400

PATIENT
  Age: 79 Year
  Sex: Female

DRUGS (4)
  1. LENVIMA [Suspect]
     Active Substance: LENVATINIB
     Indication: Endometrial cancer
     Route: 048
     Dates: start: 20230214, end: 2023
  2. LENVIMA [Suspect]
     Active Substance: LENVATINIB
     Route: 048
     Dates: start: 202303, end: 202303
  3. LENVIMA [Suspect]
     Active Substance: LENVATINIB
     Route: 048
     Dates: start: 202303, end: 202303
  4. KEYTRUDA [Concomitant]
     Active Substance: PEMBROLIZUMAB

REACTIONS (9)
  - Hallucination [Unknown]
  - Blood pressure increased [Unknown]
  - Headache [Unknown]
  - Diarrhoea [Unknown]
  - Constipation [Unknown]
  - Dry mouth [Unknown]
  - Eructation [Unknown]
  - Vertigo [Unknown]
  - Tooth disorder [Unknown]

NARRATIVE: CASE EVENT DATE: 20230201
